FAERS Safety Report 5146579-6 (Version None)
Quarter: 2006Q4

REPORT INFORMATION
  Report Type: 
  Country: None (occurrence: None)
  Receive Date: 20060911
  Receipt Date: 20060706
  Transmission Date: 20070319
  Serious: No
  Sender: FDA-Public Use
  Company Number: IND-AE-06-SAN-027

PATIENT
  Age: 35 Year
  Sex: Female

DRUGS (1)
  1. SANCTURA [Suspect]
     Indication: BLADDER DISORDER
     Dosage: 20 MG-BID-ORAL
     Route: 048
     Dates: start: 20060502, end: 20060509

REACTIONS (2)
  - DEAFNESS [None]
  - DIZZINESS [None]
